FAERS Safety Report 9086387 (Version 1)
Quarter: 2013Q1

REPORT INFORMATION
  Report Type: Report from Study
  Country: US (occurrence: US)
  Receive Date: 20130131
  Receipt Date: 20130131
  Transmission Date: 20140127
  Serious: No
  Sender: FDA-Public Use
  Company Number: US-ABBOTT-12P-163-0986239-00

PATIENT
  Age: 49 Year
  Sex: Male

DRUGS (9)
  1. HUMIRA [Suspect]
     Indication: IRRITABLE BOWEL SYNDROME
     Dates: start: 201006
  2. METOPROLOL [Concomitant]
     Indication: SYNCOPE
     Dosage: 25MG IN AM
  3. PROZAC [Concomitant]
     Indication: DEPRESSION
     Dosage: 20G IN AM
  4. WELLBUTRIN [Concomitant]
     Indication: DEPRESSION
  5. LIPITOR [Concomitant]
     Indication: BLOOD CHOLESTEROL INCREASED
     Dosage: 1MG AT BEDTIME
  6. VITAMIN D [Concomitant]
     Indication: VITAMIN D DECREASED
  7. VITAMIN D [Concomitant]
     Indication: CARDIAC DISORDER
  8. MULTIVITAMIN [Concomitant]
     Indication: PRODUCT USED FOR UNKNOWN INDICATION
     Dosage: DAILY
  9. MULTIVITAMIN [Concomitant]
     Indication: CARDIAC DISORDER

REACTIONS (9)
  - Rectal haemorrhage [Not Recovered/Not Resolved]
  - Drug dose omission [Unknown]
  - Device malfunction [Unknown]
  - Drug dose omission [Unknown]
  - Device malfunction [Unknown]
  - Drug dose omission [Unknown]
  - Device malfunction [Unknown]
  - Device malfunction [Not Recovered/Not Resolved]
  - Incorrect dose administered [Not Recovered/Not Resolved]
